FAERS Safety Report 6871093-7 (Version None)
Quarter: 2010Q3

REPORT INFORMATION
  Report Type: 
  Country: None (occurrence: None)
  Receive Date: 20100723
  Receipt Date: 20100709
  Transmission Date: 20110219
  Serious: Yes (Hospitalization)
  Sender: FDA-Public Use
  Company Number: GB-RANBAXY-2010RR-36020

PATIENT
  Age: 85 Year
  Sex: Female

DRUGS (12)
  1. CLOPIDOGREL [Suspect]
     Dosage: 75 MG, UNK
     Route: 048
     Dates: start: 20100504
  2. RANITIDINE [Suspect]
     Dosage: 150 MG, BID
     Route: 048
     Dates: start: 20100504
  3. STRONTIUM RANELATE [Suspect]
     Indication: OSTEOPOROSIS
     Dosage: 2 G, QD
     Route: 048
     Dates: start: 20100504, end: 20100526
  4. CALCICHEW D3 [Concomitant]
     Dosage: 1 DF, BID
     Route: 048
  5. CALCITRIOL [Concomitant]
     Dosage: 250 NG, QOD
     Route: 048
  6. FELODIPINE [Concomitant]
     Dosage: 5 MG, QD
     Route: 048
  7. FERROUS SULFATE TAB [Concomitant]
     Dosage: 200 MG, BID
     Route: 048
  8. FUROSEMIDE [Concomitant]
     Dosage: 40 MG, QD
     Route: 048
  9. LOSARTAN POSTASSIUM [Concomitant]
     Dosage: 100 MG, QD
     Route: 048
  10. PAROXETINE HCL [Concomitant]
     Dosage: 30 MG, QD
     Route: 048
  11. PROPRANOLOL [Concomitant]
     Dosage: 40 MG, BID
     Route: 048
  12. VITAMIN TAB [Concomitant]
     Dosage: 1 DF, QD
     Route: 048

REACTIONS (3)
  - ANGIOEDEMA [None]
  - PRURITUS [None]
  - RASH GENERALISED [None]
